FAERS Safety Report 11781068 (Version 1)
Quarter: 2015Q4

REPORT INFORMATION
  Report Type: Spontaneous
  Country: BR (occurrence: BR)
  Receive Date: 20151126
  Receipt Date: 20151126
  Transmission Date: 20160305
  Serious: Yes (Other)
  Sender: FDA-Public Use
  Company Number: BR-AMGEN-BRASP2015120245

PATIENT
  Age: 65 Year
  Sex: Female

DRUGS (1)
  1. ENBREL [Suspect]
     Active Substance: ETANERCEPT
     Indication: RHEUMATOID ARTHRITIS
     Dosage: UNK, WEEKLY (EVERY MONDAY)
     Route: 065
     Dates: start: 2010

REACTIONS (9)
  - Inflammation [Not Recovered/Not Resolved]
  - Injection site pain [Recovered/Resolved]
  - Sluggishness [Not Recovered/Not Resolved]
  - Pyrexia [Unknown]
  - Bone disorder [Not Recovered/Not Resolved]
  - Abasia [Not Recovered/Not Resolved]
  - Depressed mood [Not Recovered/Not Resolved]
  - Pain in extremity [Not Recovered/Not Resolved]
  - Drug ineffective [Not Recovered/Not Resolved]

NARRATIVE: CASE EVENT DATE: 20151003
